FAERS Safety Report 9829257 (Version 1)
Quarter: 2014Q1

REPORT INFORMATION
  Report Type: Report from Study
  Country: US (occurrence: US)
  Receive Date: 20140120
  Receipt Date: 20140120
  Transmission Date: 20141002
  Serious: Yes (Other)
  Sender: FDA-Public Use
  Company Number: US-ROCHE-1335061

PATIENT
  Sex: Male

DRUGS (4)
  1. LUCENTIS [Suspect]
     Indication: PRODUCT USED FOR UNKNOWN INDICATION
     Dosage: BOTH EYES
     Route: 050
  2. AVASTIN [Suspect]
     Indication: PRODUCT USED FOR UNKNOWN INDICATION
     Route: 065
  3. SEROQUEL [Concomitant]
     Dosage: AT NIGHT
     Route: 065
  4. FLOMAX (UNITED STATES) [Concomitant]

REACTIONS (5)
  - Cerebrovascular accident [Unknown]
  - No therapeutic response [Unknown]
  - Visual acuity reduced [Unknown]
  - Cough [Recovered/Resolved]
  - Visual field defect [Unknown]
